FAERS Safety Report 12382628 (Version 1)
Quarter: 2016Q2

REPORT INFORMATION
  Report Type: Report from Study
  Country: US (occurrence: US)
  Receive Date: 20160518
  Receipt Date: 20160518
  Transmission Date: 20160815
  Serious: No
  Sender: FDA-Public Use
  Company Number: US-MALLINCKRODT-T201601215

PATIENT
  Age: 8 Month
  Sex: Female
  Weight: 10 kg

DRUGS (8)
  1. REPOSITORY CORTICOTROPIN INJECTION [Suspect]
     Active Substance: CORTICOTROPIN
     Dosage: 0.05ML EVERY OTHER DAY
     Route: 030
     Dates: start: 20160326, end: 20160331
  2. RANITIDINE. [Concomitant]
     Active Substance: RANITIDINE
  3. REPOSITORY CORTICOTROPIN INJECTION [Suspect]
     Active Substance: CORTICOTROPIN
     Indication: INFANTILE SPASMS
     Dosage: 0.4ML TWICE DAILY
     Route: 030
     Dates: start: 20160226
  4. REPOSITORY CORTICOTROPIN INJECTION [Suspect]
     Active Substance: CORTICOTROPIN
     Dosage: 0.2ML DAILY
     Route: 030
     Dates: start: 20160318
  5. REPOSITORY CORTICOTROPIN INJECTION [Suspect]
     Active Substance: CORTICOTROPIN
     Dosage: 0.1ML DAILY
     Route: 030
     Dates: start: 20160321
  6. REPOSITORY CORTICOTROPIN INJECTION [Suspect]
     Active Substance: CORTICOTROPIN
     Dosage: 0.4ML DAILY
     Route: 030
     Dates: start: 20160310
  7. REPOSITORY CORTICOTROPIN INJECTION [Suspect]
     Active Substance: CORTICOTROPIN
     Dosage: 0.05ML DAILY
     Route: 030
     Dates: start: 20160324
  8. NYSTATIN. [Concomitant]
     Active Substance: NYSTATIN

REACTIONS (6)
  - Blood glucose increased [Not Recovered/Not Resolved]
  - Fungal skin infection [Recovering/Resolving]
  - Decreased appetite [Not Recovered/Not Resolved]
  - Electroencephalogram abnormal [Recovered/Resolved]
  - Increased appetite [Recovered/Resolved]
  - Flatulence [Recovered/Resolved]

NARRATIVE: CASE EVENT DATE: 20160228
